FAERS Safety Report 5292557-6 (Version None)
Quarter: 2007Q2

REPORT INFORMATION
  Report Type: 
  Country: None (occurrence: None)
  Receive Date: 20070404
  Receipt Date: 20070319
  Transmission Date: 20071010
  Serious: Yes (Hospitalization)
  Sender: FDA-Public Use
  Company Number: 2007BI006087

PATIENT
  Sex: Male

DRUGS (1)
  1. AVONEX [Suspect]
     Indication: MULTIPLE SCLEROSIS
     Dosage: 30 UG;QW;IM
     Route: 030

REACTIONS (6)
  - AGGRESSION [None]
  - DRY MOUTH [None]
  - DYSPNOEA [None]
  - MOOD SWINGS [None]
  - UNEVALUABLE EVENT [None]
  - URTICARIA [None]
